FAERS Safety Report 9856771 (Version 1)
Quarter: 2014Q1

REPORT INFORMATION
  Report Type: Spontaneous
  Country: DE (occurrence: DE)
  Receive Date: 20140130
  Receipt Date: 20140130
  Transmission Date: 20141002
  Serious: Yes (Other)
  Sender: FDA-Public Use
  Company Number: DE-TEVA-458860GER

PATIENT
  Age: 18 Year
  Sex: Male

DRUGS (4)
  1. TACROLIMUS [Suspect]
     Route: 065
  2. FLUCONAZOLE [Suspect]
     Route: 065
  3. NEUROCIL [Suspect]
     Indication: AGITATION
     Route: 065
  4. LORAZEPAM [Concomitant]
     Indication: AGITATION
     Route: 065

REACTIONS (3)
  - Long QT syndrome [Recovered/Resolved]
  - Ventricular tachycardia [Recovered/Resolved]
  - Cardiac arrest [Recovered/Resolved]
